FAERS Safety Report 23378470 (Version 1)
Quarter: 2024Q1

REPORT INFORMATION
  Report Type: Spontaneous
  Country: US (occurrence: None)
  Receive Date: 20240106
  Receipt Date: 20240106
  Transmission Date: 20240409
  Serious: Yes (Hospitalization)
  Sender: FDA-Public Use
  Company Number: None

PATIENT
  Age: 56 Year
  Sex: Male
  Weight: 130 kg

DRUGS (1)
  1. CISPLATIN [Suspect]
     Active Substance: CISPLATIN
     Dates: end: 20231227

REACTIONS (11)
  - Dyspnoea [None]
  - Pulmonary embolism [None]
  - Angina pectoris [None]
  - Fatigue [None]
  - Malaise [None]
  - Decreased appetite [None]
  - Cough [None]
  - Wheezing [None]
  - Diarrhoea [None]
  - Dizziness [None]
  - Influenza A virus test positive [None]

NARRATIVE: CASE EVENT DATE: 20231228
